FAERS Safety Report 19193616 (Version 1)
Quarter: 2021Q2

REPORT INFORMATION
  Report Type: Spontaneous
  Country: US (occurrence: US)
  Receive Date: 20210429
  Receipt Date: 20210429
  Transmission Date: 20210717
  Serious: No
  Sender: FDA-Public Use
  Company Number: US-GLENMARK PHARMACEUTICALS-2021GMK052849

PATIENT

DRUGS (3)
  1. TACROLIMUS. [Suspect]
     Active Substance: TACROLIMUS
     Indication: PSORIASIS
     Dosage: UNK, BID
     Route: 061
     Dates: start: 20210308, end: 20210312
  2. LEVOTHYROXIN [Concomitant]
     Active Substance: LEVOTHYROXINE
     Indication: THYROID DISORDER
     Dosage: UNK
     Route: 065
  3. METOPROLOL. [Concomitant]
     Active Substance: METOPROLOL
     Indication: MIGRAINE
     Dosage: UNK
     Route: 065

REACTIONS (9)
  - Skin swelling [Recovered/Resolved]
  - Application site pain [Recovered/Resolved]
  - Pain [Recovered/Resolved]
  - Drug ineffective for unapproved indication [Unknown]
  - Application site swelling [Recovered/Resolved]
  - Blister [Recovered/Resolved]
  - Feeling abnormal [Recovered/Resolved]
  - Application site erythema [Recovered/Resolved]
  - Rash [Recovered/Resolved]

NARRATIVE: CASE EVENT DATE: 20210308
